FAERS Safety Report 6232406-2 (Version None)
Quarter: 2009Q2

REPORT INFORMATION
  Report Type: 
  Country: None (occurrence: None)
  Receive Date: 20090615
  Receipt Date: 20090615
  Transmission Date: 20091009
  Serious: No
  Sender: FDA-Public Use
  Company Number: None

PATIENT
  Sex: Female
  Weight: 83.9154 kg

DRUGS (1)
  1. HYDROCHLOROTHIAZIDE [Suspect]
     Indication: BLOOD PRESSURE
     Dosage: 1 TABLET DAILY 25 MG.
     Dates: start: 20040823

REACTIONS (6)
  - DARK CIRCLES UNDER EYES [None]
  - DRUG INEFFECTIVE [None]
  - ECZEMA [None]
  - PRURITUS [None]
  - SKIN EXFOLIATION [None]
  - SWELLING [None]
